FAERS Safety Report 4874729-5 (Version None)
Quarter: 2006Q1

REPORT INFORMATION
  Report Type: 
  Country: None (occurrence: None)
  Receive Date: 20060106
  Receipt Date: 20050530
  Transmission Date: 20060701
  Serious: Yes (Hospitalization)
  Sender: FDA-Public Use
  Company Number: JP-MERCK-0506USA00362

PATIENT
  Age: 66 Year
  Sex: Male

DRUGS (10)
  1. PEPCID RPD [Suspect]
     Route: 048
     Dates: end: 20050524
  2. LASIX [Concomitant]
     Route: 048
  3. NORVASC [Concomitant]
     Route: 065
  4. RYTHMODAN [Concomitant]
     Route: 048
  5. [THERAPY UNSPECIFIED] [Concomitant]
     Route: 065
  6. ARTIST [Concomitant]
     Route: 048
  7. ASPIRIN [Concomitant]
     Route: 048
  8. COZAAR [Concomitant]
     Route: 048
  9. DIGOXIN [Concomitant]
     Route: 048
  10. WARFARIN POTASSIUM [Concomitant]
     Route: 048

REACTIONS (2)
  - BLOOD LACTATE DEHYDROGENASE INCREASED [None]
  - HAEMOLYTIC ANAEMIA [None]
